FAERS Safety Report 12573894 (Version 2)
Quarter: 2019Q4

REPORT INFORMATION
  Report Type: Spontaneous
  Country: US (occurrence: US)
  Receive Date: 20160720
  Receipt Date: 20191107
  Transmission Date: 20200122
  Serious: Yes (Hospitalization)
  Sender: FDA-Public Use
  Company Number: US-SA-2016SA130441

PATIENT
  Age: 54 Year
  Sex: Female

DRUGS (2)
  1. AMPYRA [Suspect]
     Active Substance: DALFAMPRIDINE
     Dosage: 10 MG,UNK
     Route: 065
     Dates: start: 20130508
  2. AUBAGIO [Suspect]
     Active Substance: TERIFLUNOMIDE
     Indication: MULTIPLE SCLEROSIS
     Dosage: 1 DF, QD
     Route: 048
     Dates: start: 20150928

REACTIONS (2)
  - Urinary tract infection [Unknown]
  - Muscular weakness [Unknown]

NARRATIVE: CASE EVENT DATE: 20160614
